FAERS Safety Report 7449485-7 (Version None)
Quarter: 2011Q2

REPORT INFORMATION
  Report Type: 
  Country: None (occurrence: None)
  Receive Date: 20110502
  Receipt Date: 20110420
  Transmission Date: 20111010
  Serious: Yes (Disabling)
  Sender: FDA-Public Use
  Company Number: BR-BAYER-2011-035046

PATIENT
  Age: 47 Year
  Sex: Male

DRUGS (3)
  1. GENERIC STUDY BETAFERON PATIENT SUPPORT PROGRAM [Suspect]
     Indication: MULTIPLE SCLEROSIS
     Dosage: 8 MIU, QOD
     Route: 048
     Dates: start: 20070201
  2. TANDRILAX [Concomitant]
     Indication: BONE PAIN
     Dosage: 1 DF, QOD
     Route: 048
  3. UNKNOWN MEDICATION [Concomitant]
     Indication: MUSCLE SPASMS
     Dosage: 1 DF, 5ID
     Route: 048

REACTIONS (4)
  - INJECTION SITE PRURITUS [None]
  - PRE-EXISTING CONDITION IMPROVED [None]
  - PARAPLEGIA [None]
  - INJECTION SITE DISCOLOURATION [None]
